FAERS Safety Report 12335153 (Version 1)
Quarter: 2016Q2

REPORT INFORMATION
  Report Type: Spontaneous
  Country: CH (occurrence: CH)
  Receive Date: 20160504
  Receipt Date: 20160504
  Transmission Date: 20160815
  Serious: Yes (Other)
  Sender: FDA-Public Use
  Company Number: CH-TEVA-654794ISR

PATIENT
  Age: 72 Year
  Sex: Female

DRUGS (2)
  1. ZOLPIDEM-MEPHA 10 LACTAB [Suspect]
     Active Substance: ZOLPIDEM TARTRATE
     Dosage: CUMMULATIVE DOSE OF 14 TABLETS OVER AN UNKNOWN DURATION
     Route: 048
  2. TEMESTA [Concomitant]
     Active Substance: LORAZEPAM
     Dosage: 1 DOSAGE FORMS DAILY;
     Route: 065
     Dates: start: 20160317, end: 20160317

REACTIONS (3)
  - Seizure [Unknown]
  - Dysgeusia [Unknown]
  - Dysphagia [Unknown]

NARRATIVE: CASE EVENT DATE: 2016
